FAERS Safety Report 4905913-X (Version None)
Quarter: 2006Q1

REPORT INFORMATION
  Report Type: 
  Country: None (occurrence: None)
  Receive Date: 20060113
  Receipt Date: 20051212
  Transmission Date: 20060701
  Serious: No
  Sender: FDA-Public Use
  Company Number: 2005SP004362

PATIENT
  Age: 81 Year
  Sex: Female
  Weight: 104.3273 kg

DRUGS (2)
  1. LUNESTA [Suspect]
     Dosage: 2 MG;HS;ORAL; 4 MG;1X;ORAL
     Route: 048
     Dates: start: 20050101, end: 20050101
  2. LUNESTA [Suspect]
     Dosage: 2 MG;HS;ORAL; 4 MG;1X;ORAL
     Route: 048
     Dates: start: 20051115, end: 20051201

REACTIONS (2)
  - DRUG INEFFECTIVE [None]
  - INSOMNIA [None]
